FAERS Safety Report 6887538-2 (Version None)
Quarter: 2010Q3

REPORT INFORMATION
  Report Type: 
  Country: None (occurrence: None)
  Receive Date: 20100730
  Receipt Date: 20100715
  Transmission Date: 20110219
  Serious: Yes (Hospitalization, Other)
  Sender: FDA-Public Use
  Company Number: IT-PAR PHARMACEUTICAL, INC-2010SCPR001189

PATIENT

DRUGS (10)
  1. CLONAZEPAM [Suspect]
     Indication: PRODUCT USED FOR UNKNOWN INDICATION
     Dosage: AS NEEDED
     Route: 065
  2. CLONAZEPAM [Suspect]
     Dosage: UNK
     Route: 065
  3. CYMBALTA [Suspect]
     Indication: PRODUCT USED FOR UNKNOWN INDICATION
     Dosage: 60 MG ONCE DAILY
     Route: 065
  4. CYMBALTA [Suspect]
     Dosage: 540 MG
     Route: 065
  5. VENLAFAXINE [Suspect]
     Indication: PRODUCT USED FOR UNKNOWN INDICATION
     Dosage: UNK
     Route: 065
  6. TRAZODONE [Suspect]
     Indication: PRODUCT USED FOR UNKNOWN INDICATION
     Dosage: 75 MG ONCE DAILY
  7. TRAZODONE [Suspect]
     Dosage: 675 MG, UNKNOWN
     Route: 065
  8. SERTRALINE HYDROCHLORIDE [Suspect]
     Indication: PRODUCT USED FOR UNKNOWN INDICATION
     Dosage: UNK
     Route: 065
  9. GABAPENTIN [Concomitant]
     Indication: GENERAL PHYSICAL CONDITION ABNORMAL
     Dosage: UNK
     Route: 065
  10. ANTI-INFLAMATORY DRUGS [Concomitant]
     Indication: GENERAL PHYSICAL CONDITION ABNORMAL
     Dosage: UNK
     Route: 065

REACTIONS (14)
  - AGITATION [None]
  - AZOTAEMIA [None]
  - CONFUSIONAL STATE [None]
  - ELECTROCARDIOGRAM QT PROLONGED [None]
  - ELECTROLYTE IMBALANCE [None]
  - HYPOTENSION [None]
  - LEUKOCYTOSIS [None]
  - MENTAL STATUS CHANGES [None]
  - MULTIPLE DRUG OVERDOSE INTENTIONAL [None]
  - SINUS BRADYCARDIA [None]
  - SOMNOLENCE [None]
  - SOPOR [None]
  - SPEECH DISORDER [None]
  - SUICIDE ATTEMPT [None]
